FAERS Safety Report 13554579 (Version 2)
Quarter: 2017Q2

REPORT INFORMATION
  Report Type: Spontaneous
  Country: HU (occurrence: HU)
  Receive Date: 20170517
  Receipt Date: 20170530
  Transmission Date: 20170830
  Serious: Yes (Other)
  Sender: FDA-Public Use
  Company Number: PHHY2017HU070671

PATIENT

DRUGS (2)
  1. FEMARA [Suspect]
     Active Substance: LETROZOLE
     Indication: METASTASES TO LYMPH NODES
  2. FEMARA [Suspect]
     Active Substance: LETROZOLE
     Indication: INVASIVE DUCTAL BREAST CARCINOMA
     Route: 065

REACTIONS (10)
  - Malignant neoplasm progression [Unknown]
  - Hydrothorax [Unknown]
  - Metastases to bone [Unknown]
  - Mass [Unknown]
  - Metastases to lymph nodes [Unknown]
  - Diastolic dysfunction [Unknown]
  - Invasive ductal breast carcinoma [Unknown]
  - Angiopathy [Unknown]
  - Oesophageal obstruction [Unknown]
  - Osteosclerosis [Unknown]

NARRATIVE: CASE EVENT DATE: 20160704
